FAERS Safety Report 8502744-9 (Version None)
Quarter: 2012Q3

REPORT INFORMATION
  Report Type: 
  Country: None (occurrence: None)
  Receive Date: 20120706
  Receipt Date: 20120706
  Transmission Date: 20120928
  Serious: Yes (Other)
  Sender: FDA-Public Use
  Company Number: None

PATIENT
  Age: 37 Year
  Weight: 114.3065 kg

DRUGS (1)
  1. ACETAMINOPHEN [Suspect]
     Indication: PAIN
     Dosage: 300 MG TWICE DAILY PO
     Route: 048
     Dates: start: 20120702, end: 20120702

REACTIONS (7)
  - ABNORMAL SLEEP-RELATED EVENT [None]
  - DYSPNOEA [None]
  - FACE INJURY [None]
  - CONFUSIONAL STATE [None]
  - INSOMNIA [None]
  - LOSS OF CONSCIOUSNESS [None]
  - FEELING ABNORMAL [None]
